FAERS Safety Report 19647458 (Version 1)
Quarter: 2021Q3

REPORT INFORMATION
  Report Type: Spontaneous
  Country: FR (occurrence: FR)
  Receive Date: 20210802
  Receipt Date: 20210802
  Transmission Date: 20211014
  Serious: Yes (Hospitalization, Congenital Anomaly, Other)
  Sender: FDA-Public Use
  Company Number: FR-MYLANLABS-2021M1046958

PATIENT
  Sex: Male

DRUGS (5)
  1. DEPAKINE                           /00228502/ [Suspect]
     Active Substance: VALPROATE SODIUM
     Indication: PRODUCT USED FOR UNKNOWN INDICATION
     Dosage: 2 DOSAGE FORM, QD
     Route: 064
     Dates: start: 20071005, end: 20071021
  2. FOLIC ACID. [Concomitant]
     Active Substance: FOLIC ACID
     Dosage: UNK
     Route: 065
     Dates: start: 20071022
  3. DEPAKINE                           /00228502/ [Suspect]
     Active Substance: VALPROATE SODIUM
     Indication: PRODUCT USED FOR UNKNOWN INDICATION
     Dosage: 2 DOSAGE FORM, QD
     Route: 064
     Dates: start: 20071022, end: 20080212
  4. LAMOTRIGINE. [Suspect]
     Active Substance: LAMOTRIGINE
     Indication: PRODUCT USED FOR UNKNOWN INDICATION
     Dosage: UNK
     Route: 064
     Dates: start: 20070920, end: 20071005
  5. DEPAKINE                           /00228502/ [Suspect]
     Active Substance: VALPROATE SODIUM
     Dosage: 750 MILLIGRAM, QD
     Route: 064
     Dates: start: 20080213, end: 20080614

REACTIONS (15)
  - Ear infection [Unknown]
  - Hypermetropia [Unknown]
  - Autism spectrum disorder [Unknown]
  - Astigmatism [Unknown]
  - Anodontia [Unknown]
  - Dysmorphism [Unknown]
  - Anger [Unknown]
  - Bronchiolitis [Unknown]
  - Foetal exposure during pregnancy [Recovered/Resolved]
  - Psychomotor retardation [Unknown]
  - Anxiety [Unknown]
  - Dysgraphia [Unknown]
  - Speech disorder developmental [Unknown]
  - Strabismus [Unknown]
  - Agitation [Unknown]

NARRATIVE: CASE EVENT DATE: 20080614
